FAERS Safety Report 10046926 (Version 2)
Quarter: 2014Q2

REPORT INFORMATION
  Report Type: Spontaneous
  Country: US (occurrence: US)
  Receive Date: 20140331
  Receipt Date: 20140508
  Transmission Date: 20141212
  Serious: Yes (Other)
  Sender: FDA-Public Use
  Company Number: PHEH2014US006057

PATIENT
  Sex: Female

DRUGS (9)
  1. VIVELLE DOT [Suspect]
     Dosage: 0.075 MG, UNK
     Route: 062
  2. VIVELLE DOT [Suspect]
     Dosage: 0.1 MG, UNK
     Route: 062
     Dates: start: 20140319
  3. METFORMIN [Concomitant]
     Dosage: UNK UKN, UNK
  4. MULTIVIT//VITAMINS NOS [Concomitant]
     Dosage: UNK UKN, UNK
  5. VITAMIN C [Concomitant]
     Dosage: UNK UKN, UNK
  6. B COMPLEX [Concomitant]
     Dosage: UNK UKN, UNK
  7. ZIRTEC [Concomitant]
     Dosage: UNK UKN, UNK
  8. LEVOTHYROXINE [Concomitant]
     Dosage: UNK UKN, UNK
  9. OMEGA 3 [Concomitant]
     Dosage: UNK UKN, UNK

REACTIONS (2)
  - Diabetes mellitus [Unknown]
  - Blood cholesterol abnormal [Unknown]
